FAERS Safety Report 24263556 (Version 1)
Quarter: 2024Q3

REPORT INFORMATION
  Report Type: Spontaneous
  Country: US (occurrence: US)
  Receive Date: 20240829
  Receipt Date: 20240829
  Transmission Date: 20241017
  Serious: No
  Sender: VERTEX
  Company Number: US-VERTEX PHARMACEUTICALS-2024-013422

PATIENT

DRUGS (1)
  1. KALYDECO [Suspect]
     Active Substance: IVACAFTOR
     Indication: Cystic fibrosis
     Route: 048

REACTIONS (6)
  - Tooth loss [Unknown]
  - Loose tooth [Unknown]
  - Psoriasis [Unknown]
  - Hypovitaminosis [Unknown]
  - Renal disorder [Unknown]
  - Cystic fibrosis hepatic disease [Unknown]

NARRATIVE: CASE EVENT DATE: 20240101
